FAERS Safety Report 17220945 (Version 1)
Quarter: 2019Q4

REPORT INFORMATION
  Report Type: Spontaneous
  Country: US (occurrence: US)
  Receive Date: 20191231
  Receipt Date: 20191231
  Transmission Date: 20200122
  Serious: No
  Sender: FDA-Public Use
  Company Number: US-FOUNDATIONCONSUMERHC-2019-US-015776

PATIENT
  Age: 24 Year
  Sex: Female
  Weight: 96.16 kg

DRUGS (1)
  1. AFTERA [Suspect]
     Active Substance: LEVONORGESTREL
     Indication: CONTRACEPTION
     Dosage: 1.5 MG X 2+ DOSES PER MONTH
     Route: 048
     Dates: start: 201903, end: 201906

REACTIONS (11)
  - Abdominal pain [Recovered/Resolved]
  - Intentional product misuse [Recovered/Resolved]
  - Back pain [Recovered/Resolved]
  - Blood follicle stimulating hormone decreased [Unknown]
  - Vaginal haemorrhage [Recovered/Resolved]
  - Uterine leiomyoma [Not Recovered/Not Resolved]
  - Abdominal discomfort [Recovered/Resolved]
  - Ultrasound abdomen abnormal [Recovered/Resolved]
  - Product use in unapproved indication [Recovered/Resolved]
  - Menstruation irregular [Not Recovered/Not Resolved]
  - Menstruation delayed [Unknown]

NARRATIVE: CASE EVENT DATE: 2019
